FAERS Safety Report 5194792-4 (Version None)
Quarter: 2006Q4

REPORT INFORMATION
  Report Type: 
  Country: None (occurrence: None)
  Receive Date: 20061229
  Receipt Date: 20061219
  Transmission Date: 20070319
  Serious: Yes (Hospitalization)
  Sender: FDA-Public Use
  Company Number: US-SANOFI-SYNTHELABO-A03200607575

PATIENT
  Sex: Male

DRUGS (12)
  1. OCUVITE [Concomitant]
     Dosage: UNK
     Route: 048
  2. VITMAMIN B1 [Concomitant]
     Dosage: UNK
     Route: 048
  3. CATAPRES [Concomitant]
     Dosage: 1 PATCH ONCE A WEEK
     Route: 061
  4. FOLIC ACID [Concomitant]
     Dosage: UNK
     Route: 048
  5. LIPITOR [Concomitant]
     Dosage: UNK
     Route: 048
  6. PROTONIX [Concomitant]
     Dosage: UNK
     Route: 048
  7. DILTIAZEM HCL [Concomitant]
     Dosage: UNK
     Route: 048
  8. LEXAPRO [Concomitant]
     Dosage: UNK
     Route: 048
  9. ASPIRIN [Concomitant]
     Route: 048
  10. AGGRENOX [Suspect]
     Dosage: UNK
     Route: 048
     Dates: start: 20061101, end: 20061119
  11. PLAVIX [Suspect]
     Indication: CEREBROVASCULAR ACCIDENT
     Route: 048
     Dates: start: 20040301, end: 20061101
  12. PLAVIX [Suspect]
     Route: 048
     Dates: start: 20061101

REACTIONS (7)
  - AGGRESSION [None]
  - AMNESIA [None]
  - ASTHENIA [None]
  - CARDIAC STRESS TEST ABNORMAL [None]
  - CORONARY ARTERY OCCLUSION [None]
  - DECREASED APPETITE [None]
  - UNRESPONSIVE TO STIMULI [None]
